FAERS Safety Report 8775799 (Version 1)
Quarter: 2012Q4

REPORT INFORMATION
  Report Type: 
  Country: BE (occurrence: BE)
  Receive Date: 20120912
  Receipt Date: 20120912
  Transmission Date: 20130627
  Serious: Yes (Other)
  Sender: FDA-Public Use
  Company Number: BE-BAYER-2012-093924

PATIENT
  Sex: Female

DRUGS (6)
  1. ASPIRINE 500 BRUIS [Suspect]
     Indication: SLEEP DISORDER
     Dosage: 1 DF, almost every day
  2. ASPIRINE 500 BRUIS [Suspect]
     Indication: RESTLESS LEGS SYNDROME
  3. RIVOTRIL [Concomitant]
     Indication: RESTLESS LEGS SYNDROME
  4. ATACAND PLUS [Concomitant]
     Indication: HYPERTENSION
  5. SIPRALEXA [Concomitant]
     Indication: DEPRESSION
  6. UTROGESTAN [Concomitant]

REACTIONS (4)
  - Sudden hearing loss [None]
  - Tinnitus [None]
  - Hyperacusis [None]
  - Ear pain [None]
